FAERS Safety Report 4717599-8 (Version None)
Quarter: 2005Q3

REPORT INFORMATION
  Report Type: 
  Country: None (occurrence: None)
  Receive Date: 20050712
  Receipt Date: 20050419
  Transmission Date: 20060218
  Serious: No
  Sender: FDA-Public Use
  Company Number: 2005S1000073

PATIENT
  Age: 50 Year
  Sex: Male
  Weight: 136.8 kg

DRUGS (2)
  1. CUBICIN [Suspect]
     Indication: POSTOPERATIVE INFECTION
     Dosage: 500 MG;Q24H;IV
     Route: 042
     Dates: start: 20050407, end: 20050415
  2. SEPTRA [Concomitant]

REACTIONS (2)
  - CHEST PAIN [None]
  - DYSPNOEA [None]
